FAERS Safety Report 22007332 (Version 2)
Quarter: 2023Q1

REPORT INFORMATION
  Report Type: Other
  Country: AT (occurrence: AT)
  Receive Date: 20230218
  Receipt Date: 20230302
  Transmission Date: 20230417
  Serious: No
  Sender: FDA-Public Use
  Company Number: AT-CELLTRION INC.-2023AT003207

PATIENT

DRUGS (4)
  1. RITUXIMAB [Suspect]
     Active Substance: RITUXIMAB
     Indication: Hairy cell leukaemia
     Dosage: UNK
     Dates: start: 2011
  2. CLADRIBINE [Suspect]
     Active Substance: CLADRIBINE
     Indication: Hairy cell leukaemia
     Dosage: UNK
     Dates: start: 2011
  3. CLADRIBINE [Suspect]
     Active Substance: CLADRIBINE
     Dosage: UNK
     Dates: start: 2010
  4. INTERFERON ALFA NOS [Suspect]
     Active Substance: INTERFERON ALFA-2A OR INTERFERON ALFA-2B
     Indication: Hairy cell leukaemia
     Dosage: UNK
     Dates: start: 2011

REACTIONS (2)
  - Therapy non-responder [Unknown]
  - Off label use [Unknown]
